FAERS Safety Report 12909519 (Version 1)
Quarter: 2016Q4

REPORT INFORMATION
  Report Type: Spontaneous
  Country: SI (occurrence: SI)
  Receive Date: 20161104
  Receipt Date: 20161104
  Transmission Date: 20170207
  Serious: Yes (Hospitalization)
  Sender: FDA-Public Use
  Company Number: SI-009507513-1611SVN001358

PATIENT
  Sex: Female

DRUGS (8)
  1. EDEMID [Concomitant]
     Active Substance: FUROSEMIDE
     Indication: CARDIAC FAILURE
     Dosage: UNK
     Route: 048
  2. NITRO-DUR [Suspect]
     Active Substance: NITROGLYCERIN
     Indication: HYPERTENSION
     Dosage: 1 DF/ ONLY DURING THE NIGHT (STRENGTH: 0.4 MG/H)
     Route: 003
  3. LACIPIL [Suspect]
     Active Substance: LACIDIPINE
     Indication: HYPERTENSION
     Dosage: IN THE EVENINGS
     Route: 048
  4. MICARDIS [Suspect]
     Active Substance: TELMISARTAN
     Indication: HYPERTENSION
     Dosage: IN THE EVENINGS
     Route: 048
  5. DUOTRAV [Concomitant]
     Active Substance: TIMOLOL MALEATE\TRAVOPROST
     Indication: GLAUCOMA
     Dosage: UNK, STRENGTH: 40 MG/ML + 5 MG/ML
     Route: 047
  6. MAREVAN [Concomitant]
     Active Substance: WARFARIN SODIUM
     Indication: ATRIAL FIBRILLATION
     Dosage: SHEME
     Route: 048
  7. EUTHYROX [Concomitant]
     Active Substance: LEVOTHYROXINE SODIUM
     Indication: HYPOTHYROIDISM
     Dosage: ONE DAY 25 UG/ONE DAY 50UG
     Route: 048
  8. CONCOR COR [Concomitant]
     Active Substance: BISOPROLOL FUMARATE
     Indication: CARDIAC FAILURE
     Dosage: IN THE EVENINGS
     Route: 048

REACTIONS (3)
  - Hypotension [Recovered/Resolved]
  - Malaise [Recovered/Resolved]
  - Vertigo [Recovered/Resolved]
